FAERS Safety Report 11115731 (Version 3)
Quarter: 2015Q3

REPORT INFORMATION
  Report Type: Spontaneous
  Country: US (occurrence: US)
  Receive Date: 20150515
  Receipt Date: 20150731
  Transmission Date: 20151125
  Serious: Yes (Other)
  Sender: FDA-Public Use
  Company Number: US-PFIZER INC-2015162429

PATIENT
  Age: 56 Year
  Sex: Male

DRUGS (3)
  1. RILUZOLE. [Suspect]
     Active Substance: RILUZOLE
     Dosage: UNK
  2. MEKINIST [Suspect]
     Active Substance: TRAMETINIB DIMETHYL SULFOXIDE
     Dosage: UNK
  3. IBRANCE [Suspect]
     Active Substance: PALBOCICLIB
     Indication: CHOROID MELANOMA
     Dosage: 125 MG, CYCLIC (DAY 1 TO DAY 21 OF A 28 DAY CYCLE)
     Route: 048
     Dates: start: 20150318, end: 20150727

REACTIONS (4)
  - Product use issue [Unknown]
  - Candida infection [Unknown]
  - Rash [Unknown]
  - Staphylococcal infection [Unknown]
